FAERS Safety Report 8377015-4 (Version None)
Quarter: 2012Q2

REPORT INFORMATION
  Report Type: 
  Country: None (occurrence: None)
  Receive Date: 20120522
  Receipt Date: 20120517
  Transmission Date: 20120825
  Serious: No
  Sender: FDA-Public Use
  Company Number: US-TEVA-338911USA

PATIENT
  Sex: Female

DRUGS (7)
  1. AZILECT [Suspect]
     Indication: PARKINSON'S DISEASE
     Route: 048
     Dates: start: 20120417
  2. SUMATRIPTAN [Concomitant]
     Route: 048
  3. FLUTICASONE PROPIONATE [Concomitant]
     Indication: NASAL CONGESTION
     Route: 045
  4. SINEMET [Concomitant]
     Dosage: 50 MG/200 MG
     Route: 048
  5. VENLAFAXINE [Concomitant]
     Indication: DEPRESSION
     Dosage: 2 CAPSULES
     Route: 048
  6. LEVOTHYROXINE SODIUM [Concomitant]
     Indication: HYPOTHYROIDISM
     Dosage: 50 MICROGRAM;
     Route: 048
  7. SINEMET [Concomitant]
     Indication: PARKINSON'S DISEASE
     Dosage: 25 MG/100 MG
     Route: 048

REACTIONS (2)
  - DYSKINESIA [None]
  - HYPERHIDROSIS [None]
